FAERS Safety Report 8345024-7 (Version None)
Quarter: 2012Q2

REPORT INFORMATION
  Report Type: 
  Country: None (occurrence: None)
  Receive Date: 20120508
  Receipt Date: 20120501
  Transmission Date: 20120825
  Serious: Yes (Death, Hospitalization, Other)
  Sender: FDA-Public Use
  Company Number: US-BAYER-2011-102907

PATIENT
  Age: 62 Year
  Sex: Female

DRUGS (32)
  1. CORTEF [Concomitant]
     Indication: BRAIN OEDEMA
     Dosage: UNK MG, UNK
  2. TORISEL [Concomitant]
     Dosage: UNK
     Dates: start: 20111230
  3. DURAGESIC-100 [Concomitant]
     Indication: PAIN
     Dosage: 25 ?G, Q72HR
     Route: 062
  4. LOPERAMIDE [Concomitant]
     Dosage: 2 MG, AC
     Route: 048
  5. ZOFRAN [Concomitant]
     Dosage: 4 MG, Q6H PRN
     Route: 048
  6. NEXAVAR [Suspect]
     Indication: RENAL CELL CARCINOMA
     Dosage: 400 MG, BID
     Route: 048
     Dates: start: 20111006, end: 20120114
  7. ALBUTEROL [Concomitant]
     Dosage: 2 PUFF(S), Q6H PRN
     Route: 055
  8. BENADRYL [Concomitant]
     Dosage: 25 MG, ONCE
     Route: 048
     Dates: start: 20120113, end: 20120113
  9. POTASSIUM CHLORIDE [Concomitant]
     Dosage: 50 MEQ, ONCE
     Route: 048
     Dates: start: 20120113, end: 20120113
  10. DUONEB [Concomitant]
     Indication: ASTHMA
     Dosage: 3 ML, Q6H
     Route: 055
  11. DURAGESIC-100 [Concomitant]
     Dosage: 12.5 ?G, Q72HR
     Route: 062
  12. FLOVENT [Concomitant]
     Indication: ASTHMA
     Dosage: 2 PUFF(S), BID
     Route: 055
  13. SINGULAIR [Concomitant]
     Indication: ASTHMA
     Dosage: 10 MG, QPM
     Route: 048
  14. OCEAN NASAL [Concomitant]
     Dosage: 2 SPRAYS AS DIRECTED
     Route: 045
  15. BIOTIN [Concomitant]
     Dosage: 900 ?G, UNK
     Route: 048
  16. TESSALON [Concomitant]
     Dosage: 100 MG, TID PRN
     Route: 048
  17. BENADRYL [Concomitant]
     Dosage: 25 MG, ONCE
     Route: 048
     Dates: start: 20120113, end: 20120113
  18. CORTEF [Concomitant]
     Indication: ADRENAL INSUFFICIENCY
     Dosage: 30 MG, WITH BREAKFAST AND SUPPER
     Route: 048
  19. CORTEF [Concomitant]
     Dosage: 20 MG, WTIH LUNCH
     Route: 048
  20. CALTRATE + D [CALCIUM,VITAMIN D NOS] [Concomitant]
     Dosage: 1 DF, BID
     Route: 048
  21. KLONOPIN [Concomitant]
     Dosage: 0.5 MG, BID PRN
  22. HYCODAN [Concomitant]
     Indication: PAIN
     Dosage: 5 ML, Q6H PRN
     Route: 048
  23. DEXAMETHASONE [Concomitant]
  24. FLAGYL [Concomitant]
     Dosage: 500 MG, Q8H
     Route: 042
  25. PRILOSEC [Concomitant]
  26. ACETAMINOPHEN [Concomitant]
     Dosage: 325 MG, Q4H PRN
     Route: 048
  27. MAGNESIUM SULFATE [Concomitant]
     Dosage: 2 G, ONCE
     Route: 042
     Dates: start: 20120113, end: 20120113
  28. OXYGEN [Concomitant]
     Dosage: 4 L, UNK
     Route: 045
  29. XGEVA [Concomitant]
     Dosage: UNK
     Dates: end: 20111230
  30. LIDOCAINE [Concomitant]
     Dosage: 20 MG, Q6H PRN
     Route: 055
  31. ANTITHROMBOTIC AGENTS [Concomitant]
     Indication: DEEP VEIN THROMBOSIS
     Dosage: UNK
  32. LEVOXYL [Concomitant]
     Indication: HYPOTHYROIDISM
     Dosage: 150 ?G, HS
     Route: 048

REACTIONS (26)
  - BLOOD POTASSIUM DECREASED [None]
  - PYREXIA [None]
  - MUSCLE ATROPHY [None]
  - PALPITATIONS [None]
  - RASH PAPULAR [None]
  - ABDOMINAL DISCOMFORT [None]
  - METASTATIC RENAL CELL CARCINOMA [None]
  - DYSPNOEA [None]
  - CHEST DISCOMFORT [None]
  - ANAEMIA [None]
  - BRAIN OEDEMA [None]
  - METASTASES TO LUNG [None]
  - BLOOD URINE PRESENT [None]
  - COUGH [None]
  - CANDIDIASIS [None]
  - DIARRHOEA [None]
  - RESPIRATORY FAILURE [None]
  - METASTASES TO CENTRAL NERVOUS SYSTEM [None]
  - MUSCULAR WEAKNESS [None]
  - HAEMOPTYSIS [None]
  - ABDOMINAL PAIN [None]
  - ADRENAL INSUFFICIENCY [None]
  - HYPERTENSION [None]
  - TACHYCARDIA [None]
  - HYPOCALCAEMIA [None]
  - METASTASES TO HEART [None]
